FAERS Safety Report 20882580 (Version 3)
Quarter: 2022Q4

REPORT INFORMATION
  Report Type: Spontaneous
  Country: US (occurrence: US)
  Receive Date: 20220527
  Receipt Date: 20221128
  Transmission Date: 20230113
  Serious: No
  Sender: FDA-Public Use
  Company Number: US-AUROBINDO-AUR-APL-2022-013165

PATIENT
  Age: 69 Year
  Sex: Female
  Weight: 46.2 kg

DRUGS (1)
  1. AZELASTINE HYDROCHLORIDE [Suspect]
     Active Substance: AZELASTINE HYDROCHLORIDE
     Indication: Sinusitis
     Dosage: 1 DOSAGE FORM, ONCE A DAY
     Route: 065

REACTIONS (4)
  - Back pain [Unknown]
  - Scoliosis [Unknown]
  - Headache [Unknown]
  - Drug ineffective [Unknown]
